FAERS Safety Report 21043059 (Version 1)
Quarter: 2022Q3

REPORT INFORMATION
  Report Type: Spontaneous
  Country: US (occurrence: US)
  Receive Date: 20220705
  Receipt Date: 20220705
  Transmission Date: 20221026
  Serious: Yes (Death, Other)
  Sender: FDA-Public Use
  Company Number: US-CELLTRION INC.-2022US010465

PATIENT

DRUGS (26)
  1. RITUXIMAB [Suspect]
     Active Substance: RITUXIMAB
     Indication: B-cell lymphoma refractory
     Dosage: 375 MG/M2 ON DAY 1 (R-DHAP)
     Route: 042
  2. RITUXIMAB [Suspect]
     Active Substance: RITUXIMAB
     Dosage: 375 MG/M2 ON DAY 1 (R-DHAP)
     Route: 042
  3. RITUXIMAB [Suspect]
     Active Substance: RITUXIMAB
     Dosage: 375 MG/M2 ON DAY 1 (R-DHAP)
     Route: 042
  4. RITUXIMAB [Suspect]
     Active Substance: RITUXIMAB
     Dosage: 375 MG/M2 ON DAY 1 (R-ICE)
     Route: 042
  5. RITUXIMAB [Suspect]
     Active Substance: RITUXIMAB
     Dosage: 375 MG/M2 ON DAY 1 (R-ICE)
     Route: 042
  6. RITUXIMAB [Suspect]
     Active Substance: RITUXIMAB
     Dosage: 375 MG/M2 ON DAY 1 (R-ICE)
     Route: 042
  7. RITUXIMAB [Suspect]
     Active Substance: RITUXIMAB
     Dosage: 375 MG/M2 ON DAY 1 (R-GDP)
     Route: 042
  8. RITUXIMAB [Suspect]
     Active Substance: RITUXIMAB
     Dosage: 375 MG/M2 ON DAY 1 (R-GDP)
     Route: 042
  9. RITUXIMAB [Suspect]
     Active Substance: RITUXIMAB
     Dosage: 375 MG/M2 ON DAY 1 (R-GDP)
     Route: 042
  10. CISPLATIN [Suspect]
     Active Substance: CISPLATIN
     Indication: B-cell lymphoma refractory
     Dosage: 3 CYCLES FOR R-DHAP: INTRAVENOUS RITUXIMAB 375 MG/M? ON DAY 1, DEXAMETHASONE 40 MG ON DAYS 1?4, TWO
     Route: 042
  11. CYTARABINE [Suspect]
     Active Substance: CYTARABINE
     Dosage: 3 CYCLES FOR R-DHAP: INTRAVENOUS RITUXIMAB 375 MG/M? ON DAY 1, DEXAMETHASONE 40 MG ON DAYS 1?4, TWO
     Route: 042
  12. DEXAMETHASONE [Suspect]
     Active Substance: DEXAMETHASONE
     Dosage: 3 CYCLES FOR R-DHAP: INTRAVENOUS RITUXIMAB 375 MG/M? ON DAY 1, DEXAMETHASONE 40 MG ON DAYS 1?4, TWO
     Route: 042
  13. CISPLATIN [Suspect]
     Active Substance: CISPLATIN
     Indication: B-cell lymphoma refractory
     Dosage: 3 CYCLES FOR R-GDP: RITUXIMAB 375 MG/M2 ON DAY 1, DEXAMETHASONE 40 MG ON DAYS 1-4, GEMCITABINE 1000
     Route: 042
  14. DEXAMETHASONE [Suspect]
     Active Substance: DEXAMETHASONE
     Dosage: 3 CYCLES FOR R-GDP: RITUXIMAB 375 MG/M2 ON DAY 1, DEXAMETHASONE 40 MG ON DAYS 1-4, GEMCITABINE 1000
     Route: 042
  15. GEMCITABINE [Suspect]
     Active Substance: GEMCITABINE
     Dosage: 3 CYCLES FOR R-GDP: RITUXIMAB 375 MG/M2 ON DAY 1, DEXAMETHASONE 40 MG ON DAYS 1-4, GEMCITABINE 1000
     Route: 042
  16. IFOSFAMIDE [Suspect]
     Active Substance: IFOSFAMIDE
     Indication: B-cell lymphoma refractory
     Dosage: 3 CYCLES FOR R-ICE: 5000 MG/M2 ON DAY 2 (R-ICE)
     Route: 042
  17. IFOSFAMIDE [Suspect]
     Active Substance: IFOSFAMIDE
     Dosage: 3 CYCLES FOR R-ICE: 5000 MG/M2 ON DAY 2 (R-ICE)
     Route: 042
  18. IFOSFAMIDE [Suspect]
     Active Substance: IFOSFAMIDE
     Dosage: 3 CYCLES FOR R-ICE: 5000 MG/M2 ON DAY 2 (R-ICE)
     Route: 042
  19. ETOPOSIDE [Suspect]
     Active Substance: ETOPOSIDE
     Indication: B-cell lymphoma refractory
     Dosage: 3 CYCLES FOR R-ICE: 100 MG/M2 ON DAYS 1-3 (R-ICE)
     Route: 042
  20. ETOPOSIDE [Suspect]
     Active Substance: ETOPOSIDE
     Dosage: 3 CYCLES FOR R-ICE: 100 MG/M2 ON DAYS 1-3 (R-ICE)
     Route: 042
  21. ETOPOSIDE [Suspect]
     Active Substance: ETOPOSIDE
     Dosage: 3 CYCLES FOR R-ICE: 100 MG/M2 ON DAYS 1-3 (R-ICE)
     Route: 042
  22. CARBOPLATIN [Suspect]
     Active Substance: CARBOPLATIN
     Indication: B-cell lymphoma refractory
     Dosage: 3 CYCLES FOR R-ICE: CARBOPLATIN AREA UNDER THE CURVE 5 [MAXIMUM DOSE 800 MG] ON DAY 2 (R-ICE)
     Route: 042
  23. CARBOPLATIN [Suspect]
     Active Substance: CARBOPLATIN
     Dosage: 3 CYCLES FOR R-ICE: CARBOPLATIN AREA UNDER THE CURVE 5 [MAXIMUM DOSE 800 MG] ON DAY 2 (R-ICE)
     Route: 042
  24. CARBOPLATIN [Suspect]
     Active Substance: CARBOPLATIN
     Dosage: 3 CYCLES FOR R-ICE: CARBOPLATIN AREA UNDER THE CURVE 5 [MAXIMUM DOSE 800 MG] ON DAY 2 (R-ICE)
     Route: 042
  25. RITUXIMAB [Suspect]
     Active Substance: RITUXIMAB
  26. RITUXIMAB [Suspect]
     Active Substance: RITUXIMAB

REACTIONS (1)
  - Sepsis [Fatal]
